FAERS Safety Report 10630194 (Version 2)
Quarter: 2014Q4

REPORT INFORMATION
  Report Type: Spontaneous
  Country: US (occurrence: US)
  Receive Date: 20141205
  Receipt Date: 20141205
  Transmission Date: 20150529
  Serious: No
  Sender: FDA-Public Use
  Company Number: US-BRISTOL-MYERS SQUIBB COMPANY-21032644

PATIENT
  Age: 60 Year
  Sex: Female
  Weight: 99.77 kg

DRUGS (1)
  1. BYDUREON [Suspect]
     Active Substance: EXENATIDE
     Indication: TYPE 2 DIABETES MELLITUS
     Dosage: INJECTION?NO OF INJ:2
     Route: 058

REACTIONS (3)
  - Drug dose omission [Unknown]
  - Injection site pruritus [Unknown]
  - Injection site reaction [Unknown]
